FAERS Safety Report 6280031-X (Version None)
Quarter: 2009Q3

REPORT INFORMATION
  Report Type: 
  Country: None (occurrence: None)
  Receive Date: 20090723
  Receipt Date: 20090713
  Transmission Date: 20100115
  Serious: Yes (Hospitalization, Other)
  Sender: FDA-Public Use
  Company Number: IT-ELI_LILLY_AND_COMPANY-IT200810006657

PATIENT
  Sex: Female

DRUGS (4)
  1. ZYPREXA [Suspect]
     Indication: PSYCHOMOTOR HYPERACTIVITY
     Dosage: 5 MG, DAILY (1/D)
     Route: 048
     Dates: start: 20071017, end: 20080101
  2. TICLODIPINE [Concomitant]
     Dosage: 500 MG, UNK
     Route: 048
  3. EXELON [Concomitant]
     Dosage: 6 MG, UNK
     Route: 048
  4. LASIX [Concomitant]
     Dosage: 25 MG, UNK
     Route: 048

REACTIONS (3)
  - CEREBRAL INFARCTION [None]
  - HEMIPARESIS [None]
  - OFF LABEL USE [None]
